FAERS Safety Report 6466810-4 (Version None)
Quarter: 2009Q4

REPORT INFORMATION
  Report Type: 
  Country: None (occurrence: None)
  Receive Date: 20091202
  Receipt Date: 20091123
  Transmission Date: 20100525
  Serious: Yes (Hospitalization)
  Sender: FDA-Public Use
  Company Number: ES-ELI_LILLY_AND_COMPANY-ES200911006375

PATIENT
  Age: 69 Year
  Sex: Female
  Weight: 40 kg

DRUGS (4)
  1. FORTEO [Suspect]
     Indication: OSTEOPOROSIS
     Dosage: 20 UG, UNKNOWN
     Route: 058
     Dates: start: 20090401
  2. NATECAL D [Concomitant]
     Dosage: UNK, UNKNOWN
     Route: 065
  3. SYMBICORT FORTE [Concomitant]
     Dosage: UNK, UNKNOWN
     Route: 065
  4. MORFINE [Concomitant]
     Indication: PAIN
     Dosage: UNK, UNKNOWN
     Route: 065

REACTIONS (1)
  - ASTHMA [None]
